FAERS Safety Report 6163430-6 (Version None)
Quarter: 2009Q2

REPORT INFORMATION
  Report Type: 
  Country: None (occurrence: None)
  Receive Date: 20090422
  Receipt Date: 20090415
  Transmission Date: 20091009
  Serious: Yes (Other)
  Sender: FDA-Public Use
  Company Number: JP-AVENTIS-200911125JP

PATIENT
  Age: 71 Year
  Sex: Male
  Weight: 73 kg

DRUGS (2)
  1. ARAVA [Suspect]
     Indication: RHEUMATOID ARTHRITIS
     Route: 048
     Dates: start: 20060817, end: 20061205
  2. AZULFIDINE EN-TABS [Concomitant]
     Indication: RHEUMATOID ARTHRITIS
     Route: 048

REACTIONS (2)
  - ALANINE AMINOTRANSFERASE INCREASED [None]
  - ASPARTATE AMINOTRANSFERASE INCREASED [None]
